FAERS Safety Report 16998278 (Version 1)
Quarter: 2019Q4

REPORT INFORMATION
  Report Type: Spontaneous
  Country: US (occurrence: US)
  Receive Date: 20190925
  Receipt Date: 20190925
  Transmission Date: 20200122
  Serious: Yes (Hospitalization)
  Sender: FDA-Public Use
  Company Number: None

PATIENT
  Age: 76 Year
  Sex: Female

DRUGS (24)
  1. METOPROL TAR TAB [Concomitant]
  2. LUMIGAN SOL [Concomitant]
  3. ONDANSETRON [Concomitant]
     Active Substance: ONDANSETRON
  4. BUMETANIDE TABLETS, USP [Concomitant]
     Active Substance: BUMETANIDE
  5. PONARIS [Concomitant]
  6. ROSUVASTATIN TAB [Concomitant]
     Active Substance: ROSUVASTATIN
  7. AZELASTINE. [Concomitant]
     Active Substance: AZELASTINE HYDROCHLORIDE
  8. CYCLOBENZAPR TAB [Concomitant]
  9. URSODIOL CAP [Concomitant]
  10. DILTIAZEM CAP [Concomitant]
  11. RHOPRESSA SOL [Concomitant]
  12. TRIAMCINOLON CRE [Concomitant]
  13. FLORANEX [Concomitant]
     Active Substance: LACTOBACILLUS ACIDOPHILUS\LACTOBACILLUS DELBRUECKII SUBSP. BULGARICUS
  14. BENZONATATE. [Concomitant]
     Active Substance: BENZONATATE
  15. ESBRIET [Suspect]
     Active Substance: PIRFENIDONE
     Indication: IDIOPATHIC PULMONARY FIBROSIS
     Route: 048
     Dates: start: 20181006
  16. OMEPRAZOLE. [Concomitant]
     Active Substance: OMEPRAZOLE
  17. ELIQUIS [Concomitant]
     Active Substance: APIXABAN
  18. TRELEGY AER ELLIPTA [Concomitant]
  19. JANUMET XR [Concomitant]
     Active Substance: METFORMIN HYDROCHLORIDE\SITAGLIPTIN PHOSPHATE
  20. ELIQUIS [Concomitant]
     Active Substance: APIXABAN
  21. POT CHLORIDE TAB [Concomitant]
  22. FOLBEE [Concomitant]
     Active Substance: CYANOCOBALAMIN\FOLIC ACID\PYRIDOXINE HYDROCHLORIDE
  23. ROPINIROLE TAB [Concomitant]
  24. DYMISTA [Concomitant]
     Active Substance: AZELASTINE HYDROCHLORIDE\FLUTICASONE PROPIONATE

REACTIONS (3)
  - Nausea [None]
  - Sinusitis [None]
  - Sepsis [None]

NARRATIVE: CASE EVENT DATE: 201810
